FAERS Safety Report 7880430-6 (Version None)
Quarter: 2011Q4

REPORT INFORMATION
  Report Type: 
  Country: None (occurrence: None)
  Receive Date: 20111101
  Receipt Date: 20111025
  Transmission Date: 20120403
  Serious: Yes (Other)
  Sender: FDA-Public Use
  Company Number: PHHY2011AR94198

PATIENT
  Sex: Female

DRUGS (1)
  1. ONBREZ [Suspect]
     Indication: LUNG DISORDER
     Dosage: UNK UKN, QD

REACTIONS (2)
  - MENISCUS LESION [None]
  - ARTHRALGIA [None]
